FAERS Safety Report 6379266-7 (Version None)
Quarter: 2009Q3

REPORT INFORMATION
  Report Type: 
  Country: None (occurrence: None)
  Receive Date: 20090928
  Receipt Date: 20090909
  Transmission Date: 20100115
  Serious: Yes (Hospitalization)
  Sender: FDA-Public Use
  Company Number: US-BAYER-200933657NA

PATIENT
  Age: 18 Year
  Sex: Female
  Weight: 86 kg

DRUGS (1)
  1. MAGNEVIST [Suspect]
     Indication: DRUG USE FOR UNKNOWN INDICATION
     Dosage: TOTAL DAILY DOSE: 19 ML
     Dates: start: 20070808, end: 20070808

REACTIONS (4)
  - CONTRAST MEDIA REACTION [None]
  - FEELING ABNORMAL [None]
  - STRESS [None]
  - TRISMUS [None]
